FAERS Safety Report 9285301 (Version 2)
Quarter: 2013Q3

REPORT INFORMATION
  Report Type: Spontaneous
  Country: JP (occurrence: None)
  Receive Date: 20130507
  Receipt Date: 20130801
  Transmission Date: 20140515
  Serious: Yes (Other)
  Sender: FDA-Public Use
  Company Number: AXC-2013-000184

PATIENT
  Sex: Male

DRUGS (2)
  1. URSODEOXYCHOLIC ACID [Suspect]
     Indication: PRODUCT USED FOR UNKNOWN INDICATION
     Route: 048
  2. LANSAP (AMOXICILLIN TRIHYDRATE, CLARITHROMYCIN, LANSOPRAZOLE) [Suspect]

REACTIONS (1)
  - Tubulointerstitial nephritis [None]
